FAERS Safety Report 16883709 (Version 1)
Quarter: 2019Q4

REPORT INFORMATION
  Report Type: Spontaneous
  Country: ES (occurrence: ES)
  Receive Date: 20191004
  Receipt Date: 20191004
  Transmission Date: 20200122
  Serious: Yes (Other)
  Sender: FDA-Public Use
  Company Number: ES-B.I. PHARMACEUTICALS,INC./RIDGEFIELD-2019-BI-103623

PATIENT
  Age: 54 Year
  Sex: Female
  Weight: 50 kg

DRUGS (3)
  1. VARGATEF [Suspect]
     Active Substance: NINTEDANIB
     Route: 065
  2. VARGATEF [Suspect]
     Active Substance: NINTEDANIB
     Route: 065
  3. VARGATEF [Suspect]
     Active Substance: NINTEDANIB
     Indication: LUNG ADENOCARCINOMA
     Route: 065

REACTIONS (4)
  - Diarrhoea [Unknown]
  - General physical health deterioration [Unknown]
  - Malignant neoplasm progression [Not Recovered/Not Resolved]
  - Weight decreased [Recovered/Resolved]
